FAERS Safety Report 6856943-2 (Version None)
Quarter: 2010Q3

REPORT INFORMATION
  Report Type: 
  Country: None (occurrence: None)
  Receive Date: 20100719
  Receipt Date: 20100715
  Transmission Date: 20110219
  Serious: Yes (Hospitalization)
  Sender: FDA-Public Use
  Company Number: BR-BAYER-200922955LA

PATIENT
  Age: 21 Year
  Sex: Female

DRUGS (5)
  1. YASMIN [Suspect]
     Indication: COLON INJURY
     Dosage: NO INTERVAL BETWEEN THREE CONSECUTIVE PACKAGES
     Route: 048
     Dates: start: 20060101
  2. YASMIN [Suspect]
     Dosage: 21D/7D
     Route: 048
     Dates: end: 20070701
  3. YASMIN [Suspect]
     Dosage: 21D/7D
     Route: 048
     Dates: start: 20090301
  4. AZITHROMYCIN [Concomitant]
     Indication: SINUSITIS
     Route: 048
     Dates: start: 20090514, end: 20090501
  5. MATERNA [Concomitant]
     Indication: PRODUCT USED FOR UNKNOWN INDICATION
     Dosage: USED FROM 5TH MONTH OF GESTATION UNTIL THE 5TH MONTH AFTER BIRTH.
     Route: 065

REACTIONS (3)
  - HEADACHE [None]
  - HOSPITALISATION [None]
  - PREGNANCY ON ORAL CONTRACEPTIVE [None]
